FAERS Safety Report 6910111-4 (Version None)
Quarter: 2010Q3

REPORT INFORMATION
  Report Type: 
  Country: None (occurrence: None)
  Receive Date: 20100806
  Receipt Date: 20100726
  Transmission Date: 20110219
  Serious: Yes (Other)
  Sender: FDA-Public Use
  Company Number: CH-TEVA-242965ISR

PATIENT
  Age: 32 Month
  Sex: Male

DRUGS (1)
  1. VINCRISTINE [Suspect]
     Indication: LEUKAEMIA

REACTIONS (1)
  - GASTROINTESTINAL HYPOMOTILITY [None]
